FAERS Safety Report 11014026 (Version 2)
Quarter: 2015Q2

REPORT INFORMATION
  Report Type: Spontaneous
  Country: US (occurrence: US)
  Receive Date: 20150412
  Receipt Date: 20150525
  Transmission Date: 20150821
  Serious: No
  Sender: FDA-Public Use
  Company Number: US-JNJFOC-20140510216

PATIENT
  Sex: Male

DRUGS (1)
  1. ELMIRON [Suspect]
     Active Substance: PENTOSAN POLYSULFATE SODIUM
     Indication: CYSTITIS INTERSTITIAL
     Route: 048

REACTIONS (8)
  - Adverse event [Unknown]
  - Nausea [Unknown]
  - Tinnitus [Unknown]
  - Product packaging issue [Unknown]
  - Hepatic enzyme increased [Unknown]
  - Dyspepsia [Unknown]
  - Diarrhoea [Unknown]
  - Ocular hyperaemia [Unknown]
